FAERS Safety Report 7249490 (Version 2)
Quarter: 2019Q2

REPORT INFORMATION
  Report Type: Spontaneous
  Country: FR (occurrence: FR)
  Receive Date: 20100119
  Receipt Date: 20190604
  Transmission Date: 20190711
  Serious: Yes (Death, Hospitalization)
  Sender: FDA-Public Use
  Company Number: FR-ELI_LILLY_AND_COMPANY-FR201001000956

PATIENT
  Age: 89 Year
  Sex: Female

DRUGS (9)
  1. BROMAZEPAM [Concomitant]
     Active Substance: BROMAZEPAM
     Dosage: UNK, UNKNOWN
     Route: 048
  2. COVERSYL PLUS [INDAPAMIDE;PERINDOPRIL ERBUMIN [Concomitant]
     Route: 048
  3. PREVISCAN [FLUINDIONE] [Interacting]
     Active Substance: FLUINDIONE
     Indication: ATRIAL FIBRILLATION
     Dosage: 0.5 DF ON WEDNESDAY AND SUNDAY IN THE EVENING, 0.25 DF IN THE EVENING THE OTHER DAYS
     Route: 048
  4. MIANSERIN [Concomitant]
     Active Substance: MIANSERIN
     Route: 048
  5. MODOPAR [Concomitant]
     Active Substance: BENSERAZIDE HYDROCHLORIDE\LEVODOPA
     Route: 048
  6. PROZAC [Suspect]
     Active Substance: FLUOXETINE HYDROCHLORIDE
     Indication: DEPRESSION
     Dosage: 40 MG, DAILY (1/D)
     Route: 048
  7. LEVOTHYROX [Interacting]
     Active Substance: LEVOTHYROXINE
     Indication: HYPOTHYROIDISM
     Dosage: UNK, UNKNOWN
     Route: 048
  8. OSTRAM [CALCIUM PHOSPHATE] [Concomitant]
     Route: 048
  9. FORLAX [Concomitant]
     Active Substance: POLYETHYLENE GLYCOL 4000
     Route: 048

REACTIONS (5)
  - Choking [Fatal]
  - Mendelson^s syndrome [Fatal]
  - Intra-abdominal haematoma [Recovered/Resolved]
  - Drug interaction [Recovered/Resolved]
  - Cardio-respiratory arrest [Fatal]

NARRATIVE: CASE EVENT DATE: 20091009
